FAERS Safety Report 5273325-8 (Version None)
Quarter: 2007Q1

REPORT INFORMATION
  Report Type: 
  Country: None (occurrence: None)
  Receive Date: 20070319
  Receipt Date: 20070307
  Transmission Date: 20070707
  Serious: Yes (Other)
  Sender: FDA-Public Use
  Company Number: 2007SP004325

PATIENT
  Age: 74 Year
  Sex: Male
  Weight: 79 kg

DRUGS (2)
  1. VIRAFERONPEG [Suspect]
     Indication: DRUG USE FOR UNKNOWN INDICATION
     Dosage: 1.5 MG/KG;QW;
  2. REBETOL [Suspect]
     Indication: DRUG USE FOR UNKNOWN INDICATION
     Dosage: PO
     Route: 048

REACTIONS (1)
  - MYOCARDITIS [None]
